FAERS Safety Report 6996617-0 (Version None)
Quarter: 2010Q3

REPORT INFORMATION
  Report Type: 
  Country: None (occurrence: None)
  Receive Date: 20100918
  Receipt Date: 20090416
  Transmission Date: 20110219
  Serious: No
  Sender: FDA-Public Use
  Company Number: US-WYE-H09223209

PATIENT
  Sex: Female

DRUGS (7)
  1. EFFEXOR XR [Suspect]
     Indication: DEPRESSION
     Dosage: GRADUALLY INCREASED TO 300 MG DAILY
     Route: 048
     Dates: end: 20090201
  2. EFFEXOR XR [Suspect]
     Dosage: UNKNOWN
     Route: 048
  3. EFFEXOR XR [Suspect]
     Route: 048
  4. AMBIEN [Suspect]
  5. VITAMIN B-12 [Concomitant]
  6. ALPRAZOLAM [Concomitant]
  7. VITAMIN D [Concomitant]

REACTIONS (7)
  - CONDITION AGGRAVATED [None]
  - DEPRESSION [None]
  - DIARRHOEA [None]
  - INSOMNIA [None]
  - SKIN ULCER [None]
  - VOMITING [None]
  - WEIGHT DECREASED [None]
